FAERS Safety Report 8609540-2 (Version None)
Quarter: 2012Q3

REPORT INFORMATION
  Report Type: 
  Country: None (occurrence: None)
  Receive Date: 20120821
  Receipt Date: 20120814
  Transmission Date: 20120928
  Serious: Yes (Disabling, Other)
  Sender: FDA-Public Use
  Company Number: US-JNJFOC-20111205192

PATIENT
  Sex: Female

DRUGS (12)
  1. TRAMADOL HCL [Concomitant]
     Indication: PAIN
     Dosage: EVERY 6 (HOURS) OR AS NEEDED
     Route: 065
  2. PREDNISONE [Suspect]
     Dosage: 7 DAYS
     Route: 048
  3. AMBIEN [Concomitant]
     Indication: SLEEP DISORDER
     Dosage: 1 EVERY NIGHT AT BED TIME OR AS NEEDED
     Route: 065
  4. PREDNISONE [Suspect]
     Indication: ARTHRALGIA
     Dosage: 7 DAYS
     Route: 048
  5. HUMIRA [Suspect]
     Indication: PSORIASIS
     Dosage: LOADING DOSE
     Route: 065
     Dates: start: 20120310
  6. STELARA [Suspect]
     Indication: PSORIASIS
     Route: 058
     Dates: start: 20120411, end: 20120101
  7. PREDNISONE [Suspect]
     Indication: SWELLING
     Dosage: 7 DAYS
     Route: 048
  8. PREDNISONE [Suspect]
     Dosage: 7 DAYS
     Route: 048
  9. HYDROXYZINE [Concomitant]
     Indication: PRURITUS
     Dosage: 25-50 MG EVERY 6 (HOURS) OR AS NEEDED
     Route: 065
  10. PREDNISONE [Suspect]
     Dosage: 7 DAYS
     Route: 048
  11. PREDNISONE [Suspect]
     Dosage: 7 DAYS
     Route: 048
  12. PHENTERMINE [Suspect]
     Indication: WEIGHT DECREASED
     Route: 048
     Dates: start: 20120701

REACTIONS (3)
  - EXPIRED DRUG ADMINISTERED [None]
  - ARTHRALGIA [None]
  - HEPATITIS B [None]
